FAERS Safety Report 23342355 (Version 2)
Quarter: 2024Q1

REPORT INFORMATION
  Report Type: Report from Study
  Country: JP (occurrence: JP)
  Receive Date: 20231227
  Receipt Date: 20240202
  Transmission Date: 20240409
  Serious: Yes (Other)
  Sender: FDA-Public Use
  Company Number: JP-BAYER-2023A183175

PATIENT
  Age: 8 Decade
  Sex: Female

DRUGS (2)
  1. VITRAKVI [Suspect]
     Active Substance: LAROTRECTINIB
     Indication: NTRK gene fusion positive
     Dosage: DAILY DOSE 100 MG
     Dates: start: 20230928, end: 20231130
  2. VITRAKVI [Suspect]
     Active Substance: LAROTRECTINIB
     Indication: Lung neoplasm malignant

REACTIONS (2)
  - Lung neoplasm malignant [Unknown]
  - NTRK gene fusion positive [Unknown]

NARRATIVE: CASE EVENT DATE: 20231130
